FAERS Safety Report 9628852 (Version 1)
Quarter: 2013Q4

REPORT INFORMATION
  Report Type: Spontaneous
  Country: GB (occurrence: GB)
  Receive Date: 20131017
  Receipt Date: 20131017
  Transmission Date: 20140711
  Serious: Yes (Hospitalization)
  Sender: FDA-Public Use
  Company Number: GB-JNJFOC-20131008558

PATIENT
  Age: 88 Year
  Sex: Female
  Weight: 60 kg

DRUGS (9)
  1. XARELTO [Suspect]
     Indication: CEREBROVASCULAR ACCIDENT PROPHYLAXIS
     Route: 048
     Dates: start: 20130424, end: 20130505
  2. XARELTO [Suspect]
     Indication: INFARCTION
     Route: 048
     Dates: start: 20130424, end: 20130505
  3. XARELTO [Suspect]
     Indication: ATRIAL FIBRILLATION
     Route: 048
     Dates: start: 20130424, end: 20130505
  4. WARFARIN [Concomitant]
     Route: 065
  5. SIMVASTATIN [Concomitant]
     Route: 065
  6. ADCAL D3 [Concomitant]
     Route: 065
  7. CITALOPRAM [Concomitant]
     Route: 065
  8. CLONAZEPAM [Concomitant]
     Route: 065
  9. PREGABALIN [Concomitant]
     Route: 065

REACTIONS (2)
  - Haemorrhage intracranial [Recovering/Resolving]
  - Confusional state [Unknown]
